FAERS Safety Report 25981293 (Version 1)
Quarter: 2025Q4

REPORT INFORMATION
  Report Type: Spontaneous
  Country: GB (occurrence: GB)
  Receive Date: 20251030
  Receipt Date: 20251030
  Transmission Date: 20260117
  Serious: Yes (Other)
  Sender: ELI LILLY AND COMPANY
  Company Number: GB-MHRA-EMIS-1279-aa7c612b-06d5-45fb-b367-a1e3c7471d67

PATIENT
  Age: 40 Year
  Sex: Female
  Weight: 145 kg

DRUGS (1)
  1. TIRZEPATIDE [Suspect]
     Active Substance: TIRZEPATIDE
     Indication: Type 2 diabetes mellitus
     Dosage: 2.5 MG, WEEKLY (1/W) (INJECT ONE 0.6 ML DOSE SUBCUTANEOUSLY ONCE EACH WEEK)
     Route: 058
     Dates: start: 20250616

REACTIONS (1)
  - Herpes zoster [Unknown]

NARRATIVE: CASE EVENT DATE: 20250625
